FAERS Safety Report 10142359 (Version 3)
Quarter: 2014Q2

REPORT INFORMATION
  Report Type: Spontaneous
  Country: IT (occurrence: IT)
  Receive Date: 20140429
  Receipt Date: 20140619
  Transmission Date: 20141212
  Serious: Yes (Hospitalization)
  Sender: FDA-Public Use
  Company Number: IT-BRISTOL-MYERS SQUIBB COMPANY-20295374

PATIENT
  Age: 84 Year
  Sex: Male

DRUGS (6)
  1. COUMADIN TABS 5 MG [Suspect]
     Indication: ATRIAL FIBRILLATION
     Dosage: INTR ON 2JAN14
     Route: 048
  2. FUROSEMIDE [Concomitant]
     Route: 048
  3. BISOPROLOL HEMIFUMARATE [Concomitant]
     Route: 048
  4. AMIODARONE [Concomitant]
     Route: 048
  5. ALLOPURINOL [Concomitant]
     Route: 048
  6. FERROUS SULFATE [Concomitant]
     Route: 048

REACTIONS (9)
  - Overdose [Recovered/Resolved]
  - International normalised ratio increased [Recovered/Resolved]
  - Decreased appetite [Unknown]
  - Productive cough [Unknown]
  - Diarrhoea [Unknown]
  - Dysphagia [Unknown]
  - Asthenia [Unknown]
  - Anaemia [Unknown]
  - Gastric polyps [Unknown]
